FAERS Safety Report 22044252 (Version 1)
Quarter: 2023Q1

REPORT INFORMATION
  Report Type: Spontaneous
  Country: US (occurrence: US)
  Receive Date: 20230228
  Receipt Date: 20230228
  Transmission Date: 20230418
  Serious: No
  Sender: FDA-Public Use
  Company Number: US-009507513-2302USA007851

PATIENT
  Sex: Female

DRUGS (1)
  1. BELSOMRA [Suspect]
     Active Substance: SUVOREXANT
     Dosage: 10 MILLIGRAM, FREQUENCY NOT REPORTED
     Route: 048
     Dates: end: 202302

REACTIONS (1)
  - Sleep paralysis [Unknown]

NARRATIVE: CASE EVENT DATE: 20230201
